FAERS Safety Report 6237663-4 (Version None)
Quarter: 2009Q2

REPORT INFORMATION
  Report Type: 
  Country: None (occurrence: None)
  Receive Date: 20090609
  Receipt Date: 20090403
  Transmission Date: 20091009
  Serious: Yes (Other)
  Sender: FDA-Public Use
  Company Number: 3001236616-2009-0013

PATIENT

DRUGS (2)
  1. OTI -BONE-TENDON-BONE, HEMI W/QUAD -HUMAN ALLOGRAFT [Suspect]
     Indication: SOFT TISSUE DISORDER
     Dosage: SINGLE USE, 064
     Dates: start: 20070405
  2. OTI -BONE-TENDON-BONE, HEMI W/QUAD -HUMAN ALLOGRAFT [Suspect]
     Indication: SURGERY
     Dosage: SINGLE USE, 064
     Dates: start: 20070405

REACTIONS (3)
  - HEPATITIS C [None]
  - PRODUCT QUALITY ISSUE [None]
  - TRANSMISSION OF AN INFECTIOUS AGENT VIA A MEDICINAL PRODUCT [None]
